FAERS Safety Report 16404853 (Version 2)
Quarter: 2019Q2

REPORT INFORMATION
  Report Type: Spontaneous
  Country: US (occurrence: US)
  Receive Date: 20190607
  Receipt Date: 20190621
  Transmission Date: 20190711
  Serious: No
  Sender: FDA-Public Use
  Company Number: US-JNJFOC-20190534725

PATIENT
  Age: 93 Year
  Sex: Female

DRUGS (1)
  1. MINOXIDIL. [Suspect]
     Active Substance: MINOXIDIL
     Indication: ALOPECIA
     Dosage: CAPFUL ONCE DAILY
     Route: 061
     Dates: end: 20190506

REACTIONS (5)
  - Skin exfoliation [Recovering/Resolving]
  - Overdose [Unknown]
  - Hair growth abnormal [Recovering/Resolving]
  - Pruritus [Recovered/Resolved]
  - Dry skin [Recovered/Resolved]
